FAERS Safety Report 24566454 (Version 1)
Quarter: 2024Q4

REPORT INFORMATION
  Report Type: Spontaneous
  Country: US (occurrence: None)
  Receive Date: 20241029
  Receipt Date: 20241029
  Transmission Date: 20250114
  Serious: No
  Sender: Public
  Company Number: None

PATIENT
  Age: 54 Year
  Sex: 0

DRUGS (1)
  1. PACLITAXEL PROTEIN BOUND PARTICLES ALBUMIN BOUND [Suspect]
     Active Substance: PACLITAXEL
     Indication: Adenocarcinoma pancreas
     Dates: start: 20240517

REACTIONS (1)
  - Product use complaint [None]

NARRATIVE: CASE EVENT DATE: 20240517
